FAERS Safety Report 9087200 (Version 1)
Quarter: 2013Q1

REPORT INFORMATION
  Report Type: Report from Study
  Country: CA (occurrence: CA)
  Receive Date: 20130201
  Receipt Date: 20130201
  Transmission Date: 20140127
  Serious: Yes (Hospitalization, Other)
  Sender: FDA-Public Use
  Company Number: PHHO2013CA000914

PATIENT
  Age: 70 Year
  Sex: Female

DRUGS (9)
  1. ACLASTA [Suspect]
     Indication: OSTEOPOROSIS
     Dosage: 5 MG/100ML
     Route: 042
     Dates: start: 20091123
  2. ACLASTA [Suspect]
     Dosage: 5 MG/100ML
     Route: 042
     Dates: start: 20120118
  3. METFORMIN [Concomitant]
     Dosage: 500 MG, UNK
  4. SYNTHROID [Concomitant]
     Dosage: 175 MG, UNK
  5. SIMVASTATIN [Concomitant]
     Dosage: 5 MG, UNK
  6. JANUVIA [Concomitant]
     Dosage: 100 MG, UNK
  7. DIAMICRON [Concomitant]
     Dosage: 30 MG, UNK
  8. ALTACE [Concomitant]
     Dosage: 2.5 MG, UNK
  9. MELOXICAM [Concomitant]
     Dosage: 705 MG, UNK

REACTIONS (3)
  - Humerus fracture [Recovered/Resolved]
  - Fall [Recovered/Resolved]
  - Upper limb fracture [Unknown]
